FAERS Safety Report 9642721 (Version 1)
Quarter: 2013Q4

REPORT INFORMATION
  Report Type: Spontaneous
  Country: DE (occurrence: DE)
  Receive Date: 20131024
  Receipt Date: 20131024
  Transmission Date: 20140711
  Serious: Yes (Hospitalization)
  Sender: FDA-Public Use
  Company Number: DE-AMGEN-DEUSP2013074988

PATIENT
  Age: 50 Year
  Sex: Female
  Weight: 68 kg

DRUGS (4)
  1. ENBREL [Suspect]
     Indication: RHEUMATOID ARTHRITIS
     Dosage: 50 MG, UNK
     Route: 058
     Dates: start: 20101124, end: 20120227
  2. ENBREL [Suspect]
     Dosage: 25 MG, UNK
     Route: 058
     Dates: start: 20120227
  3. LODOTRA [Concomitant]
     Indication: RHEUMATOID ARTHRITIS
     Dosage: 2 MG, UNK
     Route: 048
     Dates: start: 20110530
  4. VOLTAREN                           /00372301/ [Concomitant]
     Dosage: 1 DF, AS NEEDED
     Route: 048

REACTIONS (1)
  - Pancreatic carcinoma [Unknown]
